FAERS Safety Report 20521032 (Version 1)
Quarter: 2022Q1

REPORT INFORMATION
  Report Type: Report from Study
  Country: CO (occurrence: CO)
  Receive Date: 20220225
  Receipt Date: 20220225
  Transmission Date: 20220423
  Serious: Yes (Hospitalization)
  Sender: FDA-Public Use
  Company Number: CO-ABBVIE-22K-036-4293352-00

PATIENT
  Age: 62 Year
  Sex: Male
  Weight: 69 kg

DRUGS (3)
  1. HUMIRA [Suspect]
     Active Substance: ADALIMUMAB
     Indication: Uveitis
     Route: 058
     Dates: start: 20180524, end: 20220210
  2. METHOTREXATE [Suspect]
     Active Substance: METHOTREXATE
     Indication: Arthritis
     Route: 065
     Dates: start: 2021, end: 202201
  3. METHOTREXATE [Suspect]
     Active Substance: METHOTREXATE
     Route: 048
     Dates: start: 202201, end: 2022

REACTIONS (12)
  - Intestinal obstruction [Recovering/Resolving]
  - Prostatitis [Recovering/Resolving]
  - Nephrolithiasis [Recovering/Resolving]
  - Weight decreased [Recovering/Resolving]
  - Gastritis [Recovering/Resolving]
  - Testicular pain [Recovering/Resolving]
  - Mobility decreased [Unknown]
  - Myositis [Unknown]
  - Myalgia [Unknown]
  - COVID-19 [Recovering/Resolving]
  - Eye pain [Recovering/Resolving]
  - Abdominal pain [Recovering/Resolving]

NARRATIVE: CASE EVENT DATE: 20220101
